FAERS Safety Report 7999747-X (Version None)
Quarter: 2011Q4

REPORT INFORMATION
  Report Type: 
  Country: None (occurrence: None)
  Receive Date: 20111221
  Receipt Date: 20090721
  Transmission Date: 20120403
  Serious: Yes (Other)
  Sender: FDA-Public Use
  Company Number: JP-SANTEN INC.-INC-11-000172

PATIENT
  Age: 8 Year
  Sex: Male

DRUGS (1)
  1. LEVOFLOXACIN [Suspect]
     Indication: EXCORIATION
     Route: 047
     Dates: start: 20090716, end: 20090716

REACTIONS (5)
  - HYPERAEMIA [None]
  - EYELID OEDEMA [None]
  - CONJUNCTIVAL OEDEMA [None]
  - EYE PAIN [None]
  - ANAPHYLACTIC SHOCK [None]
